FAERS Safety Report 7638033-4 (Version None)
Quarter: 2011Q3

REPORT INFORMATION
  Report Type: 
  Country: None (occurrence: None)
  Receive Date: 20110722
  Receipt Date: 20110722
  Transmission Date: 20111222
  Serious: Yes (Hospitalization)
  Sender: FDA-Public Use
  Company Number: None

PATIENT
  Sex: Female
  Weight: 73.6 kg

DRUGS (2)
  1. TOPOTECAN [Suspect]
     Dosage: 4.08 MG
     Dates: end: 20110630
  2. PACLITAXEL [Suspect]
     Dosage: 318 MG
     Dates: end: 20110628

REACTIONS (1)
  - URINARY TRACT INFECTION [None]
